FAERS Safety Report 10045046 (Version 1)
Quarter: 2014Q1

REPORT INFORMATION
  Report Type: Spontaneous
  Country: FR (occurrence: FR)
  Receive Date: 20140328
  Receipt Date: 20140328
  Transmission Date: 20141002
  Serious: Yes (Hospitalization, Other)
  Sender: FDA-Public Use
  Company Number: ALCN2014FR001874

PATIENT
  Age: 41 Year
  Sex: Female

DRUGS (13)
  1. AZOPT [Suspect]
     Dosage: 1 GTT, BID
     Route: 047
     Dates: start: 201311
  2. PRAVASTATIN SODIUM [Suspect]
     Dosage: 20 MG, QD
     Route: 048
  3. AMLODIPINE [Suspect]
     Dosage: 5 MG, QD
     Route: 048
  4. IMUREL [Suspect]
     Dosage: 50 MG, QD
     Route: 048
     Dates: end: 20140217
  5. LASILIX [Suspect]
     Dosage: 40 MG, QD
     Route: 048
  6. CORTANCYL [Suspect]
     Dosage: 5 MG, QD
     Route: 048
  7. INEXIUM//ESOMEPRAZOLE MAGNESIUM [Suspect]
     Dosage: 20 MG, QD
     Route: 048
  8. LUMIGAN [Suspect]
     Dosage: 1 GTT, QD
     Route: 047
  9. HYPERIUM [Suspect]
     Dosage: 1 MG, QD
     Route: 048
  10. TEMERIT [Suspect]
     Dosage: 5 MG, QD
     Route: 048
  11. PROGRAF [Suspect]
     Dosage: 1 MG, 6QD
     Route: 048
  12. NOVOMIX [Suspect]
     Dosage: 30 U, QD
     Route: 058
  13. NOVORAPID [Suspect]
     Dosage: 14 U, QD
     Route: 058

REACTIONS (3)
  - Pancytopenia [Recovering/Resolving]
  - Urinary tract infection [Recovered/Resolved]
  - Neutropenia [Recovering/Resolving]
